FAERS Safety Report 6210308-5 (Version None)
Quarter: 2009Q2

REPORT INFORMATION
  Report Type: 
  Country: None (occurrence: None)
  Receive Date: 20090529
  Receipt Date: 20090529
  Transmission Date: 20091009
  Serious: Yes (Hospitalization)
  Sender: FDA-Public Use
  Company Number: None

PATIENT
  Age: 82 Year
  Sex: Female
  Weight: 71.2147 kg

DRUGS (2)
  1. RISPERIDONE [Suspect]
     Indication: DEMENTIA
     Dosage: 5MG TWICE/DAY OTHER
     Route: 050
     Dates: start: 20080801, end: 20090528
  2. RISPERIDONE [Suspect]
     Indication: PARANOIA
     Dosage: 5MG TWICE/DAY OTHER
     Route: 050
     Dates: start: 20080801, end: 20090528

REACTIONS (7)
  - BLOOD GLUCOSE INCREASED [None]
  - COUGH [None]
  - DIZZINESS [None]
  - MUSCULOSKELETAL STIFFNESS [None]
  - SOMNOLENCE [None]
  - URINE OUTPUT INCREASED [None]
  - VISUAL IMPAIRMENT [None]
